FAERS Safety Report 17662098 (Version 1)
Quarter: 2020Q2

REPORT INFORMATION
  Report Type: Spontaneous
  Country: DE (occurrence: DE)
  Receive Date: 20200413
  Receipt Date: 20200413
  Transmission Date: 20200713
  Serious: Yes (Other)
  Sender: FDA-Public Use
  Company Number: DE-MYLANLABS-2020M1036060

PATIENT
  Sex: Female

DRUGS (1)
  1. ALLERGODIL AKUT DUO [Suspect]
     Active Substance: AZELASTINE HYDROCHLORIDE
     Indication: PRODUCT USED FOR UNKNOWN INDICATION
     Dosage: UNK

REACTIONS (3)
  - Ocular hyperaemia [Unknown]
  - Anaphylactic shock [Unknown]
  - Eye pruritus [Unknown]
